FAERS Safety Report 4473284-1 (Version None)
Quarter: 2004Q4

REPORT INFORMATION
  Report Type: 
  Country: None (occurrence: None)
  Receive Date: 20041013
  Receipt Date: 20041005
  Transmission Date: 20050328
  Serious: Yes (Other)
  Sender: FDA-Public Use
  Company Number: PHBS2004BR13330

PATIENT
  Sex: Male

DRUGS (1)
  1. DIOVAN HCT [Suspect]
     Indication: HYPERTENSION
     Dosage: VAL 80 / HCT 12.5 MG/DAY
     Route: 048

REACTIONS (2)
  - BLINDNESS [None]
  - MACULAR DEGENERATION [None]
